FAERS Safety Report 17001534 (Version 1)
Quarter: 2019Q4

REPORT INFORMATION
  Report Type: Spontaneous
  Country: US (occurrence: US)
  Receive Date: 20191106
  Receipt Date: 20191106
  Transmission Date: 20200122
  Serious: Yes (Other)
  Sender: FDA-Public Use
  Company Number: US-PFIZER INC-2019478915

PATIENT
  Age: 81 Year
  Sex: Female

DRUGS (1)
  1. METHOTREXATE SODIUM. [Suspect]
     Active Substance: METHOTREXATE SODIUM
     Dosage: UNK

REACTIONS (7)
  - Joint swelling [Unknown]
  - Musculoskeletal deformity [Unknown]
  - Infection [Unknown]
  - Drug ineffective [Unknown]
  - Pain [Unknown]
  - Sepsis [Unknown]
  - Rheumatoid arthritis [Unknown]
